FAERS Safety Report 8988237 (Version 1)
Quarter: 2012Q4

REPORT INFORMATION
  Report Type: 
  Country: US (occurrence: US)
  Receive Date: 20121227
  Receipt Date: 20121227
  Transmission Date: 20130627
  Serious: No
  Sender: FDA-Public Use
  Company Number: US-ASTRAZENECA-2012SE93595

PATIENT
  Age: 63 Year
  Sex: Male
  Weight: 90.7 kg

DRUGS (11)
  1. CRESTOR [Suspect]
     Indication: BLOOD CHOLESTEROL INCREASED
     Route: 048
     Dates: start: 2010, end: 2012
  2. CRESTOR [Suspect]
     Indication: BLOOD CHOLESTEROL INCREASED
     Route: 048
     Dates: start: 2012, end: 20121206
  3. LEVYTHYROXINE [Concomitant]
     Indication: THYROID DISORDER
  4. CLOPIDIGREL [Concomitant]
     Indication: PROPHYLAXIS
  5. XARELTO [Concomitant]
     Indication: CARDIAC FLUTTER
  6. CARVEDILOL [Concomitant]
     Indication: BLOOD PRESSURE
  7. NITROSTAT [Concomitant]
  8. ALPRAZOLAM [Concomitant]
     Indication: ANXIETY
  9. ALPRAZOLAM [Concomitant]
     Indication: INSOMNIA
  10. ALPRAZOLAM [Concomitant]
     Indication: AGITATION
  11. LOSARTAN [Concomitant]
     Indication: BLOOD PRESSURE

REACTIONS (6)
  - Decreased appetite [Unknown]
  - Dysgeusia [Unknown]
  - Chromaturia [Unknown]
  - Headache [Unknown]
  - Asthenia [Unknown]
  - Abdominal pain upper [Unknown]
